FAERS Safety Report 8889458 (Version 1)
Quarter: 2012Q4

REPORT INFORMATION
  Report Type: Spontaneous
  Country: US (occurrence: None)
  Receive Date: 20121102
  Receipt Date: 20121102
  Transmission Date: 20130627
  Serious: No
  Sender: FDA-Public Use
  Company Number: None

PATIENT
  Age: 30 Year
  Sex: Male
  Weight: 65.5 kg

DRUGS (1)
  1. INFLIXIMAB [Suspect]
     Indication: CROHN^S DISEASE
     Dosage: MG
     Dates: start: 20121005, end: 20121005

REACTIONS (8)
  - Chills [None]
  - Pruritus [None]
  - Chills [None]
  - Hypotension [None]
  - Tachycardia [None]
  - Vomiting [None]
  - Urticaria [None]
  - Infusion related reaction [None]
